FAERS Safety Report 7113042-2 (Version None)
Quarter: 2010Q4

REPORT INFORMATION
  Report Type: 
  Country: None (occurrence: None)
  Receive Date: 20101119
  Receipt Date: 20101109
  Transmission Date: 20110411
  Serious: Yes (Other)
  Sender: FDA-Public Use
  Company Number: AU-JNJFOC-20101103031

PATIENT
  Sex: Male
  Weight: 66 kg

DRUGS (3)
  1. RISPERDAL CONSTA [Suspect]
     Indication: SCHIZOPHRENIA
     Dosage: FORTNIGHTLY
     Route: 030
  2. RISPERDAL CONSTA [Suspect]
     Dosage: (25MG PLUS 37.5MG) 2/52, PAST 12/12
     Route: 030
  3. RISPERDAL CONSTA [Suspect]
     Dosage: 25MG PLUS 50MG
     Route: 030

REACTIONS (2)
  - DEEP VEIN THROMBOSIS [None]
  - OVERDOSE [None]
